FAERS Safety Report 21734534 (Version 1)
Quarter: 2022Q4

REPORT INFORMATION
  Report Type: Spontaneous
  Country: US (occurrence: US)
  Receive Date: 20221215
  Receipt Date: 20221215
  Transmission Date: 20230113
  Serious: No
  Sender: FDA-Public Use
  Company Number: US-PFIZER INC-PV202200122259

PATIENT
  Age: 50 Year
  Sex: Female

DRUGS (6)
  1. IBRANCE [Suspect]
     Active Substance: PALBOCICLIB
     Dosage: UNK
  2. TAMOXIFEN [Concomitant]
     Active Substance: TAMOXIFEN
     Dosage: UNK
  3. ZOMETA [Concomitant]
     Active Substance: ZOLEDRONIC ACID
     Dosage: UNK
  4. ZOLADEX [Concomitant]
     Active Substance: GOSERELIN ACETATE
     Dosage: UNK
  5. XGEVA [Concomitant]
     Active Substance: DENOSUMAB
     Dosage: UNK
  6. ADAMINE [Concomitant]
     Dosage: UNK

REACTIONS (4)
  - Neoplasm progression [Unknown]
  - Product prescribing issue [Unknown]
  - White blood cell count decreased [Unknown]
  - Premature menopause [Unknown]
